FAERS Safety Report 5350157-3 (Version None)
Quarter: 2007Q2

REPORT INFORMATION
  Report Type: 
  Country: None (occurrence: None)
  Receive Date: 20070521
  Receipt Date: 20070314
  Transmission Date: 20071010
  Serious: No
  Sender: FDA-Public Use
  Company Number: WAES 0703USA02773

PATIENT
  Age: 75 Year
  Sex: Female

DRUGS (4)
  1. JANUVIA [Suspect]
     Indication: DIABETES MELLITUS NON-INSULIN-DEPENDENT
     Dosage: 100 MG/DAILY/PO
     Route: 048
     Dates: start: 20070101
  2. AVANDIA [Concomitant]
  3. TOPROL-XL [Concomitant]
  4. VYTORIN [Concomitant]

REACTIONS (1)
  - HOT FLUSH [None]
